FAERS Safety Report 5978441-0 (Version None)
Quarter: 2008Q4

REPORT INFORMATION
  Report Type: 
  Country: None (occurrence: None)
  Receive Date: 20081128
  Receipt Date: 20081113
  Transmission Date: 20090506
  Serious: Yes (Death, Hospitalization)
  Sender: FDA-Public Use
  Company Number: GXKR2008US10930

PATIENT
  Age: 63 Year
  Sex: Male

DRUGS (4)
  1. CYCLOSPORINE [Suspect]
     Indication: IMMUNOSUPPRESSION
  2. MYCOPHENOLATE MOFETIL [Suspect]
     Indication: IMMUNOSUPPRESSION
  3. PREDNISONE [Suspect]
     Indication: IMMUNOSUPPRESSION
  4. METHYLPREDNISOLONE [Suspect]
     Indication: HEART TRANSPLANT
     Dosage: INTRAVENOUS
     Route: 042

REACTIONS (14)
  - ARTERITIS CORONARY [None]
  - ASCITES [None]
  - CORONARY ARTERY THROMBOSIS [None]
  - DISEASE RECURRENCE [None]
  - DYSPNOEA [None]
  - EJECTION FRACTION DECREASED [None]
  - EPSTEIN-BARR VIRUS ASSOCIATED LYMPHOPROLIFERATIVE DISORDER [None]
  - FATIGUE [None]
  - INTRACARDIAC THROMBUS [None]
  - JUGULAR VEIN DISTENSION [None]
  - MYOCARDITIS [None]
  - NO THERAPEUTIC RESPONSE [None]
  - OEDEMA PERIPHERAL [None]
  - VASCULITIS [None]
